FAERS Safety Report 10236725 (Version 1)
Quarter: 2014Q2

REPORT INFORMATION
  Report Type: Spontaneous
  Country: US (occurrence: US)
  Receive Date: 20140613
  Receipt Date: 20140613
  Transmission Date: 20141212
  Serious: Yes (Other)
  Sender: FDA-Public Use
  Company Number: US-GLAXOSMITHKLINE-A1076443A

PATIENT
  Age: 73 Year
  Sex: Male

DRUGS (16)
  1. VOTRIENT [Suspect]
     Indication: RENAL CELL CARCINOMA
     Dosage: 200MG PER DAY
     Route: 048
     Dates: start: 20140210
  2. AMITRIPTYLINE [Concomitant]
  3. COENZYME Q10 [Concomitant]
  4. EXELON [Concomitant]
  5. FLOMAX [Concomitant]
  6. LIPITOR [Concomitant]
  7. LYRICA [Concomitant]
  8. PROTONIX [Concomitant]
  9. PROSCAR [Concomitant]
  10. REQUIP [Concomitant]
  11. SENOKOT [Concomitant]
  12. SODA MINT [Concomitant]
  13. SPIRIVA [Concomitant]
  14. SYMBICORT [Concomitant]
  15. TESSALON PEARLS [Concomitant]
  16. ZOFRAN [Concomitant]

REACTIONS (4)
  - Loss of consciousness [Unknown]
  - Dizziness [Unknown]
  - Tremor [Unknown]
  - Nausea [Unknown]
